FAERS Safety Report 5782826-5 (Version None)
Quarter: 2008Q2

REPORT INFORMATION
  Report Type: 
  Country: None (occurrence: None)
  Receive Date: 20080619
  Receipt Date: 20080619
  Transmission Date: 20081010
  Serious: Yes (Hospitalization)
  Sender: FDA-Public Use
  Company Number: None

PATIENT
  Sex: Male

DRUGS (1)
  1. TRAZODONE HCL [Suspect]
     Dosage: 150MG #30 ONE AT BEDTIME ORAL
     Route: 048
     Dates: start: 20080505, end: 20080508

REACTIONS (4)
  - DRUG DISPENSING ERROR [None]
  - MEDICATION ERROR [None]
  - UNEVALUABLE EVENT [None]
  - WRONG DRUG ADMINISTERED [None]
